FAERS Safety Report 15363144 (Version 5)
Quarter: 2018Q4

REPORT INFORMATION
  Report Type: Spontaneous
  Country: US (occurrence: US)
  Receive Date: 20180907
  Receipt Date: 20181001
  Transmission Date: 20190204
  Serious: Yes (Other)
  Sender: FDA-Public Use
  Company Number: US-CELGENEUS-USA-20180809557

PATIENT
  Sex: Male

DRUGS (1)
  1. POMALYST [Suspect]
     Active Substance: POMALIDOMIDE
     Indication: PLASMA CELL MYELOMA
     Dosage: 3 MILLIGRAM
     Route: 048
     Dates: start: 20180731

REACTIONS (8)
  - Thrombocytopenia [Unknown]
  - Skin exfoliation [Unknown]
  - Skin discolouration [Unknown]
  - Neutropenia [Unknown]
  - Laboratory test abnormal [Unknown]
  - Rash [Unknown]
  - Constipation [Unknown]
  - Eye discharge [Unknown]

NARRATIVE: CASE EVENT DATE: 2018
